FAERS Safety Report 10036523 (Version 4)
Quarter: 2014Q2

REPORT INFORMATION
  Report Type: Report from Study
  Country: US (occurrence: US)
  Receive Date: 20140326
  Receipt Date: 20140612
  Transmission Date: 20141212
  Serious: Yes (Other)
  Sender: FDA-Public Use
  Company Number: PHEH2014US005708

PATIENT
  Sex: Female

DRUGS (1)
  1. EXFORGE [Suspect]
     Dosage: 1 DF, (160 MG VALS AND 5 MG AMLO)
     Route: 048

REACTIONS (3)
  - Parkinson^s disease [Unknown]
  - Feeling abnormal [Unknown]
  - Feeling jittery [Unknown]
